FAERS Safety Report 4367212-7 (Version None)
Quarter: 2004Q2

REPORT INFORMATION
  Report Type: 
  Country: None (occurrence: None)
  Receive Date: 20040526
  Receipt Date: 20040506
  Transmission Date: 20050107
  Serious: Yes (Hospitalization)
  Sender: FDA-Public Use
  Company Number: 197331

PATIENT
  Age: 41 Year
  Sex: Female

DRUGS (2)
  1. AVONEX [Suspect]
     Indication: MULTIPLE SCLEROSIS
     Dosage: 30 MCG QW IM
     Route: 030
     Dates: start: 20011023, end: 20030801
  2. AVONEX [Suspect]
     Indication: MULTIPLE SCLEROSIS
     Dosage: 30 MCG QW IM
     Route: 030
     Dates: start: 20030801

REACTIONS (6)
  - CARBOHYDRATE ANTIGEN 125 INCREASED [None]
  - OOPHORECTOMY [None]
  - OVARIAN CYST [None]
  - URINARY TRACT INFECTION [None]
  - UTERINE ENLARGEMENT [None]
  - VAGINAL HYSTERECTOMY [None]
